FAERS Safety Report 8214086-X (Version None)
Quarter: 2012Q1

REPORT INFORMATION
  Report Type: 
  Country: None (occurrence: None)
  Receive Date: 20120314
  Receipt Date: 20120314
  Transmission Date: 20120608
  Serious: Yes (Hospitalization)
  Sender: FDA-Public Use
  Company Number: None

PATIENT
  Sex: Female
  Weight: 54.8 kg

DRUGS (2)
  1. CARBOPLATIN [Suspect]
     Dosage: 760 MG
     Dates: end: 20120228
  2. TAXOTERE [Suspect]
     Dosage: 120 MG
     Dates: end: 20120228

REACTIONS (1)
  - FEBRILE NEUTROPENIA [None]
